FAERS Safety Report 20137841 (Version 1)
Quarter: 2021Q4

REPORT INFORMATION
  Report Type: Spontaneous
  Country: FR (occurrence: FR)
  Receive Date: 20211202
  Receipt Date: 20211202
  Transmission Date: 20220303
  Serious: Yes (Hospitalization, Other)
  Sender: FDA-Public Use
  Company Number: FR-ABBVIE-21K-056-4182097-00

PATIENT
  Age: 15 Year
  Sex: Male

DRUGS (6)
  1. VALPROATE SODIUM [Suspect]
     Active Substance: VALPROATE SODIUM
     Indication: Encephalopathy
     Route: 048
     Dates: start: 20200930, end: 20201001
  2. BACLOFEN [Suspect]
     Active Substance: BACLOFEN
     Indication: Encephalopathy
     Route: 048
     Dates: start: 20200930, end: 20201001
  3. CLONAZEPAM [Suspect]
     Active Substance: CLONAZEPAM
     Indication: Encephalopathy
     Dosage: 2.5 MG/ML, 42 GTT DROPS
     Route: 048
     Dates: start: 20200930, end: 20201001
  4. SABRIL [Suspect]
     Active Substance: VIGABATRIN
     Indication: Encephalopathy
     Route: 048
     Dates: start: 20200930, end: 20201001
  5. DIAZEPAM [Suspect]
     Active Substance: DIAZEPAM
     Indication: Encephalopathy
     Dosage: 144 GTT DROPS,
     Route: 048
     Dates: start: 20200930, end: 20201001
  6. ARTANE [Suspect]
     Active Substance: TRIHEXYPHENIDYL HYDROCHLORIDE
     Indication: Extrapyramidal disorder
     Dosage: 0.4 %, 1200 GTT DROPS
     Route: 048
     Dates: start: 20200930, end: 20201001

REACTIONS (1)
  - Apnoea [Recovered/Resolved]

NARRATIVE: CASE EVENT DATE: 20201001
